FAERS Safety Report 14605126 (Version 1)
Quarter: 2018Q1

REPORT INFORMATION
  Report Type: Spontaneous
  Country: US (occurrence: US)
  Receive Date: 20180306
  Receipt Date: 20180306
  Transmission Date: 20180509
  Serious: Yes (Other)
  Sender: FDA-Public Use
  Company Number: None

PATIENT
  Age: 41 Year
  Sex: Female
  Weight: 74.39 kg

DRUGS (1)
  1. AMOXETINE 60MG [Suspect]
     Active Substance: ATOMOXETINE
     Route: 048

REACTIONS (5)
  - Agitation [None]
  - Fall [None]
  - Fatigue [None]
  - Confusional state [None]
  - Mood swings [None]

NARRATIVE: CASE EVENT DATE: 20170911
